FAERS Safety Report 4850906-4 (Version None)
Quarter: 2005Q4

REPORT INFORMATION
  Report Type: 
  Country: None (occurrence: None)
  Receive Date: 20051212
  Receipt Date: 20051206
  Transmission Date: 20060501
  Serious: Yes (Hospitalization)
  Sender: FDA-Public Use
  Company Number: FR-GLAXOSMITHKLINE-B0402861A

PATIENT
  Age: 29 Year
  Sex: Female

DRUGS (11)
  1. ZOVIRAX [Suspect]
     Dosage: 3UNIT PER DAY
     Route: 042
     Dates: start: 20051107, end: 20051108
  2. MYOLASTAN [Suspect]
     Dosage: 1.5TAB PER DAY
     Route: 048
     Dates: start: 20051106, end: 20051109
  3. LOVENOX [Suspect]
     Dosage: 40MG PER DAY
     Route: 058
     Dates: start: 20051107, end: 20051109
  4. PROFENID [Suspect]
     Dosage: 2UNIT PER DAY
     Route: 042
     Dates: start: 20051107, end: 20051108
  5. ACUPAN [Concomitant]
     Dosage: 2UNIT PER DAY
     Route: 042
     Dates: start: 20051106, end: 20051107
  6. XANAX [Concomitant]
     Dosage: 375MCG PER DAY
     Route: 048
     Dates: start: 20051106, end: 20051108
  7. MOTILIUM [Concomitant]
     Route: 048
     Dates: start: 20051107, end: 20051109
  8. ACETAMINOPHEN [Concomitant]
     Route: 065
     Dates: start: 20051108
  9. HEPTAMYL [Concomitant]
     Route: 065
     Dates: start: 20051108
  10. PERFALGAN [Concomitant]
     Route: 065
     Dates: start: 20051105
  11. LOXAPAC [Concomitant]
     Route: 065
     Dates: start: 20051108, end: 20051110

REACTIONS (5)
  - BLOOD CREATINE ABNORMAL [None]
  - BLOOD UREA INCREASED [None]
  - HYPONATRAEMIA [None]
  - PROTEINURIA [None]
  - RENAL FAILURE ACUTE [None]
